FAERS Safety Report 9645885 (Version 1)
Quarter: 2013Q4

REPORT INFORMATION
  Report Type: Spontaneous
  Country: US (occurrence: None)
  Receive Date: 20131024
  Receipt Date: 20131024
  Transmission Date: 20140711
  Serious: No
  Sender: FDA-Public Use
  Company Number: None

PATIENT
  Age: 54 Year
  Sex: Male

DRUGS (1)
  1. TECFIDERA 240MG BIOGEN IDEC [Suspect]
     Route: 048
     Dates: start: 201306

REACTIONS (4)
  - Urinary retention [None]
  - Dry mouth [None]
  - Dry eye [None]
  - Constipation [None]
